FAERS Safety Report 8392270-2 (Version None)
Quarter: 2012Q2

REPORT INFORMATION
  Report Type: 
  Country: None (occurrence: None)
  Receive Date: 20120529
  Receipt Date: 20120518
  Transmission Date: 20120825
  Serious: Yes (Other)
  Sender: FDA-Public Use
  Company Number: CA-JNJFOC-20120516910

PATIENT
  Sex: Female

DRUGS (1)
  1. REMICADE [Suspect]
     Indication: CROHN'S DISEASE
     Route: 042
     Dates: start: 20120514

REACTIONS (7)
  - HYPOAESTHESIA [None]
  - FALL [None]
  - DIZZINESS [None]
  - RETCHING [None]
  - NAUSEA [None]
  - ASTHENIA [None]
  - HEADACHE [None]
